FAERS Safety Report 16158697 (Version 1)
Quarter: 2019Q2

REPORT INFORMATION
  Report Type: Spontaneous
  Country: US (occurrence: US)
  Receive Date: 20190403
  Receipt Date: 20190403
  Transmission Date: 20190711
  Serious: Yes (Hospitalization)
  Sender: FDA-Public Use
  Company Number: None

PATIENT
  Age: 52 Year
  Sex: Female

DRUGS (31)
  1. DIAZEPAM. [Concomitant]
     Active Substance: DIAZEPAM
  2. DILTIAZEM. [Concomitant]
     Active Substance: DILTIAZEM
  3. LEFLUNOMIDE. [Concomitant]
     Active Substance: LEFLUNOMIDE
  4. OXYCODONE [Concomitant]
     Active Substance: OXYCODONE
  5. PERCOCET [Concomitant]
     Active Substance: ACETAMINOPHEN\OXYCODONE HYDROCHLORIDE
  6. SEASONAL TAB [Concomitant]
  7. CARDIZEM [Concomitant]
     Active Substance: DILTIAZEM HYDROCHLORIDE
  8. ASPIRIN. [Concomitant]
     Active Substance: ASPIRIN
  9. DIOVAN [Concomitant]
     Active Substance: VALSARTAN
  10. NEURONTIN [Concomitant]
     Active Substance: GABAPENTIN
  11. TIZANIDINE. [Concomitant]
     Active Substance: TIZANIDINE
  12. VITAMIN D3 [Concomitant]
     Active Substance: CHOLECALCIFEROL
  13. ZOLPIDEM [Concomitant]
     Active Substance: ZOLPIDEM\ZOLPIDEM TARTRATE
  14. NASACORT [Concomitant]
     Active Substance: TRIAMCINOLONE ACETONIDE
  15. AMBIEN [Concomitant]
     Active Substance: ZOLPIDEM TARTRATE
  16. EPINEPHRINE. [Concomitant]
     Active Substance: EPINEPHRINE
  17. INTROVALE [Concomitant]
     Active Substance: ETHINYL ESTRADIOL\LEVONORGESTREL
  18. MONTELUKAST [Concomitant]
     Active Substance: MONTELUKAST SODIUM
  19. PROAIR HFA [Concomitant]
     Active Substance: ALBUTEROL SULFATE
  20. ORENCIA [Suspect]
     Active Substance: ABATACEPT
     Indication: RHEUMATOID ARTHRITIS
     Dosage: ?          OTHER FREQUENCY:Q7DAYS;?
     Route: 058
     Dates: start: 20160726
  21. GABAPENTIN. [Concomitant]
     Active Substance: GABAPENTIN
  22. PROCHLORPER [Concomitant]
  23. QUASENSE [Concomitant]
     Active Substance: ETHINYL ESTRADIOL\LEVONORGESTREL
  24. CUVITRU [Concomitant]
     Active Substance: HUMAN IMMUNOGLOBULIN G
  25. LANSOPRAZOLE. [Concomitant]
     Active Substance: LANSOPRAZOLE
  26. SUMATRIPTAN. [Concomitant]
     Active Substance: SUMATRIPTAN
  27. VALIUM [Concomitant]
     Active Substance: DIAZEPAM
  28. IRBESARTAN. [Concomitant]
     Active Substance: IRBESARTAN
  29. PILOCARPINE. [Concomitant]
     Active Substance: PILOCARPINE
  30. PREDNISONE. [Concomitant]
     Active Substance: PREDNISONE
  31. PREVACID [Concomitant]
     Active Substance: LANSOPRAZOLE

REACTIONS (4)
  - Femur fracture [None]
  - Product dose omission [None]
  - Hip surgery [None]
  - Product prescribing issue [None]

NARRATIVE: CASE EVENT DATE: 20190129
